FAERS Safety Report 12557183 (Version 1)
Quarter: 2016Q3

REPORT INFORMATION
  Report Type: Spontaneous
  Country: US (occurrence: US)
  Receive Date: 20160714
  Receipt Date: 20160714
  Transmission Date: 20161109
  Serious: No
  Sender: FDA-Public Use
  Company Number: US-GLAXOSMITHKLINE-US2016GSK100337

PATIENT
  Sex: Female

DRUGS (1)
  1. TANZEUM [Suspect]
     Active Substance: ALBIGLUTIDE
     Indication: TYPE 2 DIABETES MELLITUS
     Dosage: 30 MG, WE
     Dates: start: 201606

REACTIONS (6)
  - Drug dose omission [Unknown]
  - Accidental exposure to product [Unknown]
  - Device use error [Unknown]
  - Wrong technique in product usage process [Unknown]
  - Underdose [Unknown]
  - Device leakage [Unknown]
